FAERS Safety Report 14614429 (Version 1)
Quarter: 2018Q1

REPORT INFORMATION
  Report Type: Spontaneous
  Country: US (occurrence: US)
  Receive Date: 20180308
  Receipt Date: 20180308
  Transmission Date: 20180509
  Serious: Yes (Disabling, Other)
  Sender: FDA-Public Use
  Company Number: US-REGENERON PHARMACEUTICALS, INC.-2018-16310

PATIENT

DRUGS (2)
  1. EYLEA [Suspect]
     Active Substance: AFLIBERCEPT
     Indication: SUBRETINAL FLUID
     Dosage: UNK, LAST DOSE
     Dates: start: 201802, end: 201802
  2. EYLEA [Suspect]
     Active Substance: AFLIBERCEPT
     Indication: RETINAL OEDEMA
     Dosage: ABOUT EVERY THREE MONTHS
     Dates: start: 2017

REACTIONS (3)
  - Cataract [Unknown]
  - Off label use [Unknown]
  - Blindness [Unknown]

NARRATIVE: CASE EVENT DATE: 2017
